FAERS Safety Report 4941533-9 (Version None)
Quarter: 2006Q1

REPORT INFORMATION
  Report Type: 
  Country: None (occurrence: None)
  Receive Date: 20060308
  Receipt Date: 20060223
  Transmission Date: 20060701
  Serious: Yes (Life-Threatening)
  Sender: FDA-Public Use
  Company Number: 2006028474

PATIENT
  Age: 77 Year
  Sex: Male

DRUGS (2)
  1. CLINDAMYCIN [Suspect]
     Indication: ILL-DEFINED DISORDER
     Dosage: 1800 MG (600 MG, 3 IN 1 D), ORAL
     Route: 048
     Dates: start: 20050601, end: 20050731
  2. SULFAMETHOXAZOLE + TRIMETHOPRIM [Suspect]
     Indication: ILL-DEFINED DISORDER
     Dosage: 1.5 DF (1 IN 1 D), ORAL
     Route: 048
     Dates: start: 20050601, end: 20050731

REACTIONS (3)
  - CLOSTRIDIUM COLITIS [None]
  - EXTREMITY NECROSIS [None]
  - RENAL FAILURE ACUTE [None]
